FAERS Safety Report 7608843-8 (Version None)
Quarter: 2011Q3

REPORT INFORMATION
  Report Type: 
  Country: None (occurrence: None)
  Receive Date: 20110713
  Receipt Date: 20110713
  Transmission Date: 20111222
  Serious: No
  Sender: FDA-Public Use
  Company Number: None

PATIENT
  Sex: Female

DRUGS (4)
  1. CELLCEPT [Concomitant]
  2. PROGRAF [Concomitant]
  3. ARANESP [Suspect]
     Dosage: 100 MCG/0.5ML PO INJECT 100MCG SUBCUTANEOUSLY EVERY FOUR WEEKS
     Route: 048
  4. VALCYTE [Concomitant]

REACTIONS (2)
  - CONVULSION [None]
  - NO REACTION ON PREVIOUS EXPOSURE TO DRUG [None]
